FAERS Safety Report 8761354 (Version 8)
Quarter: 2013Q2

REPORT INFORMATION
  Report Type: Spontaneous
  Country: US (occurrence: US)
  Receive Date: 20120830
  Receipt Date: 20130628
  Transmission Date: 20140414
  Serious: Yes (Hospitalization, Other)
  Sender: FDA-Public Use
  Company Number: US-MERCK-1208USA008543

PATIENT
  Sex: Female

DRUGS (3)
  1. FOSAMAX [Suspect]
     Indication: OSTEOPOROSIS
     Dosage: 70 MG, UNK
     Route: 048
     Dates: start: 200801, end: 200803
  2. BONIVA [Suspect]
     Indication: OSTEOPOROSIS
     Dosage: 150 MG, UNK
     Dates: start: 200804, end: 2009
  3. RECLAST [Suspect]
     Indication: OSTEOPOROSIS
     Dosage: UNK
     Route: 040
     Dates: start: 200904, end: 20110609

REACTIONS (35)
  - Hip fracture [Unknown]
  - Femur fracture [Unknown]
  - Pelvic fracture [Unknown]
  - Hip fracture [Unknown]
  - Parathyroid gland operation [Unknown]
  - Tibia fracture [Unknown]
  - Osteonecrosis [Unknown]
  - Osteonecrosis [Unknown]
  - Hip arthroplasty [Unknown]
  - Hypoparathyroidism [Unknown]
  - Tooth extraction [Not Recovered/Not Resolved]
  - Impaired healing [Unknown]
  - Tooth abscess [Not Recovered/Not Resolved]
  - Respiratory tract congestion [Unknown]
  - Bronchitis [Unknown]
  - Rhinitis allergic [Unknown]
  - Fall [Unknown]
  - Osteopenia [Not Recovered/Not Resolved]
  - Osteochondrosis [Unknown]
  - Fall [Unknown]
  - Joint effusion [Unknown]
  - Osteoarthritis [Unknown]
  - Osteoarthritis [Unknown]
  - Hyperparathyroidism [Unknown]
  - Blood calcium increased [Unknown]
  - Skin ulcer [Unknown]
  - Spinal compression fracture [Unknown]
  - Aortic calcification [Unknown]
  - Vasomotor rhinitis [Unknown]
  - Pneumonia [Unknown]
  - Mitral valve prolapse [Unknown]
  - Asthma [Unknown]
  - Actinic keratosis [Unknown]
  - Toe operation [Unknown]
  - Medical device removal [Unknown]
